FAERS Safety Report 9528629 (Version 1)
Quarter: 2013Q3

REPORT INFORMATION
  Report Type: Spontaneous
  Country: US (occurrence: US)
  Receive Date: 20130917
  Receipt Date: 20130917
  Transmission Date: 20140515
  Serious: No
  Sender: FDA-Public Use
  Company Number: US-BANPHARM-20120123

PATIENT
  Age: 61 Year
  Sex: Female
  Weight: 76.81 kg

DRUGS (2)
  1. ZYRTEC LIQUID GELS 10 MG [Suspect]
     Indication: HYPERSENSITIVITY
     Dosage: 1 DF, QD,  X 3-4 TIMES,
     Route: 048
     Dates: start: 201208, end: 20120829
  2. XOVENEX (INHALER AND NEBULIZER) [Concomitant]
     Dosage: UP TO 4 X DAILY
     Dates: start: 201208

REACTIONS (2)
  - Foreign body [Recovered/Resolved]
  - Product physical issue [Unknown]
